FAERS Safety Report 20727344 (Version 1)
Quarter: 2022Q2

REPORT INFORMATION
  Report Type: Other
  Country: CN (occurrence: None)
  Receive Date: 20220419
  Receipt Date: 20220419
  Transmission Date: 20220720
  Serious: Yes (Other)
  Sender: FDA-Public Use
  Company Number: CN-ROCHE-3077787

PATIENT

DRUGS (4)
  1. CAPECITABINE [Suspect]
     Active Substance: CAPECITABINE
     Indication: Pituitary tumour benign
     Dosage: TAKEN WITHIN 30 MINUTES AFTER MEAL WITH WATER. INTERVAL OF 1 WEEK AFTER 2 WEEKS OF TREATMENT, 3 WEEK
     Route: 048
  2. BROMOCRIPTINE [Suspect]
     Active Substance: BROMOCRIPTINE
     Indication: Pituitary tumour benign
     Route: 048
  3. BROMOCRIPTINE [Suspect]
     Active Substance: BROMOCRIPTINE
     Route: 048
  4. TEMOZOLOMIDE [Suspect]
     Active Substance: TEMOZOLOMIDE
     Indication: Pituitary tumour benign
     Dosage: ADMINISTERED ORALLY ON AN EMPTY STOMACH, FOLLOWED BY AN INTERVAL OF 23 DAY, WITH 28 DAY AS A CYCLE
     Route: 048

REACTIONS (1)
  - Ototoxicity [Unknown]
